FAERS Safety Report 24638859 (Version 1)
Quarter: 2024Q4

REPORT INFORMATION
  Report Type: Spontaneous
  Country: RO (occurrence: RO)
  Receive Date: 20241119
  Receipt Date: 20241119
  Transmission Date: 20250115
  Serious: Yes (Hospitalization, Other)
  Sender: MERCK
  Company Number: RO-009507513-2411ROU004771

PATIENT
  Age: 73 Year
  Sex: Male

DRUGS (2)
  1. KEYTRUDA [Suspect]
     Active Substance: PEMBROLIZUMAB
     Dosage: UNK
     Dates: start: 20230126, end: 20230330
  2. KEYTRUDA [Suspect]
     Active Substance: PEMBROLIZUMAB
     Dosage: UNK
     Dates: start: 20230420

REACTIONS (10)
  - Tubulointerstitial nephritis [Not Recovered/Not Resolved]
  - Metabolic dysfunction-associated steatohepatitis [Not Recovered/Not Resolved]
  - Hospitalisation [Recovered/Resolved]
  - Paraesthesia [Unknown]
  - Anaemia [Unknown]
  - Therapy partial responder [Unknown]
  - Creatinine renal clearance increased [Unknown]
  - Transaminases increased [Recovered/Resolved]
  - Pulmonary mass [Unknown]
  - Gastrointestinal toxicity [Recovered/Resolved]
